FAERS Safety Report 9675942 (Version 3)
Quarter: 2013Q4

REPORT INFORMATION
  Report Type: Spontaneous
  Country: DE (occurrence: US)
  Receive Date: 20131107
  Receipt Date: 20131202
  Transmission Date: 20140711
  Serious: Yes (Disabling)
  Sender: FDA-Public Use
  Company Number: US-PFIZER INC-2013317591

PATIENT
  Age: 48 Year
  Sex: Female
  Weight: 99.8 kg

DRUGS (5)
  1. XANAX [Suspect]
     Indication: DEPRESSION
     Dosage: UNK, AS NEEDED
  2. TOVIAZ [Suspect]
     Indication: URINARY INCONTINENCE
     Dosage: 4 MG, DAILY
  3. TOVIAZ [Suspect]
     Dosage: 4 MG, DAILY
     Dates: start: 201302
  4. METFORMIN [Concomitant]
     Indication: DIABETES MELLITUS
     Dosage: 1000MG IN THE MORNING AND 1500MG IN THE AFTERNOON
  5. BENAZEPRIL HYDROCHLORIDE [Concomitant]
     Indication: HYPERTENSION
     Dosage: 10 MG, DAILY

REACTIONS (2)
  - Physical disability [Not Recovered/Not Resolved]
  - Drug ineffective [Unknown]
